FAERS Safety Report 9137144 (Version 1)
Quarter: 2013Q1

REPORT INFORMATION
  Report Type: Spontaneous
  Country: US (occurrence: US)
  Receive Date: 20130304
  Receipt Date: 20130304
  Transmission Date: 20140127
  Serious: No
  Sender: FDA-Public Use
  Company Number: US-ABBOTT-12P-163-0948926-00

PATIENT
  Sex: Male
  Weight: 105.78 kg

DRUGS (1)
  1. ANDROGEL 1% [Suspect]
     Indication: BLOOD TESTOSTERONE DECREASED
     Dates: start: 2002, end: 2003

REACTIONS (4)
  - Blood pressure increased [Recovered/Resolved]
  - Haematocrit increased [Recovered/Resolved]
  - Erythema [Recovered/Resolved]
  - Blood testosterone increased [Recovered/Resolved]
